FAERS Safety Report 15484942 (Version 1)
Quarter: 2018Q4

REPORT INFORMATION
  Report Type: Spontaneous
  Country: US (occurrence: US)
  Receive Date: 20181010
  Receipt Date: 20181010
  Transmission Date: 20190205
  Serious: No
  Sender: FDA-Public Use
  Company Number: US-ROCHE-2113203

PATIENT
  Age: 81 Year
  Sex: Female
  Weight: 67.19 kg

DRUGS (17)
  1. ASPIRIN. [Concomitant]
     Active Substance: ASPIRIN
  2. METHOTREXATE. [Concomitant]
     Active Substance: METHOTREXATE
  3. OXYGEN. [Concomitant]
     Active Substance: OXYGEN
     Route: 045
  4. CLONIDINE HCL [Concomitant]
     Active Substance: CLONIDINE HYDROCHLORIDE
  5. GABAPENTIN. [Concomitant]
     Active Substance: GABAPENTIN
  6. METOPROLOL SUCCINATE. [Concomitant]
     Active Substance: METOPROLOL SUCCINATE
  7. ESBRIET [Suspect]
     Active Substance: PIRFENIDONE
     Dosage: TAKE 3 TABLET BY MOUTH THRICE A DAY
     Route: 048
  8. LEVOTHYROXINE SODIUM. [Concomitant]
     Active Substance: LEVOTHYROXINE SODIUM
  9. VITAMIN C [Concomitant]
     Active Substance: ASCORBIC ACID
  10. ESBRIET [Suspect]
     Active Substance: PIRFENIDONE
     Dosage: TAKE 2 TABLET BY MOUTH THRICE A DAY FOR 1 WEEK
     Route: 048
  11. ESBRIET [Suspect]
     Active Substance: PIRFENIDONE
     Dosage: 3 TABLETS, PRESENT
     Route: 048
     Dates: start: 20180411
  12. MELATONIN [Concomitant]
     Active Substance: MELATONIN
     Route: 048
  13. ATENOLOL. [Concomitant]
     Active Substance: ATENOLOL
  14. IBUPROFEN. [Concomitant]
     Active Substance: IBUPROFEN
  15. ESBRIET [Suspect]
     Active Substance: PIRFENIDONE
     Indication: IDIOPATHIC PULMONARY FIBROSIS
     Dosage: TAKE 1 TABLET BY MOUTH THRICE A DAY FOR 1 WEEK
     Route: 048
     Dates: start: 20180415
  16. ATORVASTATIN CALCIUM. [Concomitant]
     Active Substance: ATORVASTATIN CALCIUM
  17. VITAMELTS ENERGY [Concomitant]
     Route: 065

REACTIONS (4)
  - Insomnia [Not Recovered/Not Resolved]
  - Asthenia [Not Recovered/Not Resolved]
  - Dyspnoea [Unknown]
  - Fatigue [Unknown]

NARRATIVE: CASE EVENT DATE: 201805
